FAERS Safety Report 4280072-8 (Version None)
Quarter: 2004Q1

REPORT INFORMATION
  Report Type: 
  Country: None (occurrence: None)
  Receive Date: 20040126
  Receipt Date: 20040113
  Transmission Date: 20041129
  Serious: Yes (Disabling, Other)
  Sender: FDA-Public Use
  Company Number: 2003116105

PATIENT
  Age: 56 Year
  Sex: Female
  Weight: 50 kg

DRUGS (3)
  1. RELPAX [Suspect]
     Indication: MIGRAINE WITHOUT AURA
     Dosage: 80 MG PRN
     Dates: start: 20030101, end: 20031014
  2. HEPTAMINOL HYDROCHLORIDE (HEPTAMINOL HYDROCHLORIDE) [Suspect]
     Indication: ILL-DEFINED DISORDER
     Dosage: 760 MG QID, ORAL
     Route: 048
     Dates: start: 20031008, end: 20031026
  3. GINKGO BILOBA (GINKO BILOBA) [Suspect]
     Indication: ILL-DEFINED DISORDER
     Dosage: ORAL
     Route: 048
     Dates: start: 20031011, end: 20031102

REACTIONS (25)
  - ACCOMMODATION DISORDER [None]
  - ACTIVITIES OF DAILY LIVING IMPAIRED [None]
  - AFFECTIVE DISORDER [None]
  - AGEUSIA [None]
  - AGGRESSION [None]
  - APHASIA [None]
  - ARTERIAL SPASM [None]
  - ASTHENIA [None]
  - BALANCE DISORDER [None]
  - CEREBRAL ISCHAEMIA [None]
  - CLUMSINESS [None]
  - DISTURBANCE IN ATTENTION [None]
  - DRUG INEFFECTIVE [None]
  - DYSARTHRIA [None]
  - DYSGRAPHIA [None]
  - FACIAL PALSY [None]
  - FATIGUE [None]
  - HYPOTENSION [None]
  - INDIFFERENCE [None]
  - MYALGIA [None]
  - SPEECH DISORDER [None]
  - TINNITUS [None]
  - TRANSIENT ISCHAEMIC ATTACK [None]
  - VASOCONSTRICTION [None]
  - VASOSPASM [None]
